FAERS Safety Report 16590360 (Version 1)
Quarter: 2019Q3

REPORT INFORMATION
  Report Type: Spontaneous
  Country: IN (occurrence: IN)
  Receive Date: 20190718
  Receipt Date: 20190718
  Transmission Date: 20191004
  Serious: Yes (Death, Other)
  Sender: FDA-Public Use
  Company Number: IN-ROCHE-2355946

PATIENT
  Sex: Female

DRUGS (4)
  1. KADCYLA [Suspect]
     Active Substance: ADO-TRASTUZUMAB EMTANSINE
     Indication: BREAST CANCER
     Route: 042
     Dates: start: 201801, end: 201803
  2. HERCLON [Suspect]
     Active Substance: TRASTUZUMAB
     Indication: BREAST CANCER
     Route: 042
     Dates: start: 201801, end: 201803
  3. HERCLON [Suspect]
     Active Substance: TRASTUZUMAB
     Indication: BREAST CANCER
  4. KADCYLA [Suspect]
     Active Substance: ADO-TRASTUZUMAB EMTANSINE
     Route: 042
     Dates: end: 201902

REACTIONS (8)
  - Pulmonary oedema [Unknown]
  - Pulmonary haemorrhage [Unknown]
  - Drug ineffective [Unknown]
  - Jaundice [Unknown]
  - Mobility decreased [Unknown]
  - Mouth haemorrhage [Unknown]
  - Grip strength decreased [Unknown]
  - Death [Fatal]

NARRATIVE: CASE EVENT DATE: 20190226
